FAERS Safety Report 8113087 (Version 3)
Quarter: 2013Q1

REPORT INFORMATION
  Report Type: Spontaneous
  Country: US (occurrence: US)
  Receive Date: 20110830
  Receipt Date: 20130107
  Transmission Date: 20140127
  Serious: Yes (Life-Threatening, Hospitalization, Other)
  Sender: FDA-Public Use
  Company Number: US-ASTRAZENECA-2011SE51357

PATIENT
  Age: 22 Year
  Sex: Female
  Weight: 54.4 kg

DRUGS (8)
  1. SEROQUEL XR [Suspect]
     Indication: BIPOLAR DISORDER
     Route: 048
     Dates: start: 20110816
  2. LISINOPRIL [Suspect]
     Route: 048
  3. HEROIN [Suspect]
     Route: 065
  4. METHADONE [Suspect]
     Route: 065
  5. TRAZODONE [Suspect]
     Route: 065
  6. FLUOXETINE [Suspect]
     Route: 065
  7. XANAX [Suspect]
     Route: 065
  8. ABILIFY [Concomitant]

REACTIONS (13)
  - Cardiac arrest [Recovered/Resolved with Sequelae]
  - Cardiomyopathy [Recovering/Resolving]
  - Ejection fraction decreased [Unknown]
  - Left ventricular dysfunction [Unknown]
  - Torsade de pointes [Recovering/Resolving]
  - Electrocardiogram QT prolonged [Unknown]
  - Substance abuse [Unknown]
  - Ventricular hypokinesia [Unknown]
  - Agitation [Recovered/Resolved]
  - Blood potassium decreased [Unknown]
  - Amnesia [Recovering/Resolving]
  - Drug dependence [Recovering/Resolving]
  - Drug dependence [None]
